FAERS Safety Report 5312148-8 (Version None)
Quarter: 2007Q2

REPORT INFORMATION
  Report Type: 
  Country: None (occurrence: None)
  Receive Date: 20070430
  Receipt Date: 20061031
  Transmission Date: 20071010
  Serious: No
  Sender: FDA-Public Use
  Company Number: 2006UW16595

PATIENT
  Age: 68 Year
  Sex: Female
  Weight: 64.4 kg

DRUGS (14)
  1. NEXIUM [Suspect]
     Indication: EROSIVE OESOPHAGITIS
     Route: 048
     Dates: start: 20060401
  2. NEXIUM [Suspect]
     Indication: GASTROOESOPHAGEAL REFLUX DISEASE
     Route: 048
     Dates: start: 20060401
  3. NEXIUM [Suspect]
     Indication: GASTRITIS
     Route: 048
     Dates: start: 20060401
  4. NEXIUM [Suspect]
     Route: 048
     Dates: end: 20061028
  5. NEXIUM [Suspect]
     Route: 048
     Dates: end: 20061028
  6. NEXIUM [Suspect]
     Route: 048
     Dates: end: 20061028
  7. NEXIUM [Suspect]
     Route: 048
     Dates: start: 20061029
  8. NEXIUM [Suspect]
     Route: 048
     Dates: start: 20061029
  9. NEXIUM [Suspect]
     Route: 048
     Dates: start: 20061029
  10. FLOVENT [Concomitant]
  11. PROVENTIL-HFA [Concomitant]
  12. MAALOX FAST BLOCKER [Concomitant]
  13. PEPTO-BISMOL [Concomitant]
  14. DYAZIDE [Concomitant]

REACTIONS (5)
  - ANAL DISCOMFORT [None]
  - DRUG INEFFECTIVE [None]
  - DYSPEPSIA [None]
  - FLATULENCE [None]
  - STOMACH DISCOMFORT [None]
